FAERS Safety Report 6244070-7 (Version None)
Quarter: 2009Q2

REPORT INFORMATION
  Report Type: 
  Country: None (occurrence: None)
  Receive Date: 20090625
  Receipt Date: 20090617
  Transmission Date: 20091009
  Serious: Yes (Hospitalization)
  Sender: FDA-Public Use
  Company Number: JP-BRISTOL-MYERS SQUIBB COMPANY-14674907

PATIENT
  Age: 42 Year
  Sex: Male

DRUGS (3)
  1. EFAVIRENZ CAPS [Suspect]
     Indication: HIV INFECTION
     Route: 048
     Dates: start: 20051201
  2. ZIDOVUDINE [Suspect]
     Indication: HIV INFECTION
     Route: 048
     Dates: start: 20051201
  3. LAMIVUDINE [Suspect]
     Indication: HIV INFECTION
     Dosage: FORM = TABS
     Route: 048
     Dates: start: 20051201

REACTIONS (1)
  - NEPHROTIC SYNDROME [None]
